FAERS Safety Report 10901791 (Version 1)
Quarter: 2015Q1

REPORT INFORMATION
  Report Type: Report from Study
  Country: US (occurrence: US)
  Receive Date: 20150310
  Receipt Date: 20150310
  Transmission Date: 20150721
  Serious: Yes (Death)
  Sender: FDA-Public Use
  Company Number: US-009507513-1405USA008937

PATIENT
  Age: 87 Year
  Sex: Male
  Weight: 74.8 kg

DRUGS (6)
  1. TYLENOL [Concomitant]
     Active Substance: ACETAMINOPHEN
     Indication: LARYNGEAL PAIN
     Dosage: 500 MG, QD, FORMULATION: PILL
     Route: 048
     Dates: start: 20130820
  2. PEMBROLIZUMAB. [Suspect]
     Active Substance: PEMBROLIZUMAB
     Dosage: UNK, Q3W
     Route: 042
     Dates: start: 20130903, end: 20130903
  3. PEMBROLIZUMAB. [Suspect]
     Active Substance: PEMBROLIZUMAB
     Indication: MALIGNANT MELANOMA
     Dosage: UNK, Q3W
     Route: 042
     Dates: start: 20130722, end: 20130812
  4. CRESTOR [Concomitant]
     Active Substance: ROSUVASTATIN CALCIUM
     Indication: BLOOD CHOLESTEROL INCREASED
     Dosage: TOTAL DAILY DOSE: 20MILLIGRAM, FREQUENCY: OTHER
     Route: 048
     Dates: start: 20130921
  5. DECADRON [Concomitant]
     Active Substance: DEXAMETHASONE
     Indication: LARYNGEAL INFLAMMATION
     Dosage: 12 MILLIGRAM, QD
     Route: 048
     Dates: start: 20130919
  6. SENOKOT [Concomitant]
     Active Substance: SENNOSIDES
     Indication: CONSTIPATION
     Dosage: TOTAL DAILY DOSE: 1 TABLET, PRN
     Route: 048
     Dates: start: 20130808

REACTIONS (1)
  - Respiratory failure [Fatal]

NARRATIVE: CASE EVENT DATE: 20140123
